FAERS Safety Report 9680769 (Version 3)
Quarter: 2013Q4

REPORT INFORMATION
  Report Type: Spontaneous
  Country: JP (occurrence: JP)
  Receive Date: 20131111
  Receipt Date: 20131128
  Transmission Date: 20140711
  Serious: Yes (Hospitalization, Other)
  Sender: FDA-Public Use
  Company Number: JP-JNJFOC-20131104874

PATIENT
  Age: 71 Year
  Sex: Female

DRUGS (4)
  1. TRAMCET [Suspect]
     Indication: PAIN
     Dosage: 1 PER 1 DAY
     Route: 048
     Dates: start: 20130930, end: 20130930
  2. LIMAPROST ALFADEX [Concomitant]
     Indication: PAIN
     Dosage: 1 PER 1 DAY
     Route: 048
     Dates: start: 20130930, end: 20130930
  3. PURSENNID [Concomitant]
     Indication: PROPHYLAXIS
     Dosage: 1 PER 1 DAY
     Route: 048
     Dates: start: 20130930, end: 20130930
  4. TAKEPRON [Concomitant]
     Indication: PROPHYLAXIS
     Route: 048
     Dates: start: 20130930, end: 20130930

REACTIONS (7)
  - Jaundice [Unknown]
  - Liver function test abnormal [Unknown]
  - Fluid intake reduced [Unknown]
  - Vomiting [Recovered/Resolved]
  - Dehydration [Recovered/Resolved]
  - Asthenia [Not Recovered/Not Resolved]
  - Cold sweat [Unknown]
